FAERS Safety Report 16338995 (Version 2)
Quarter: 2019Q2

REPORT INFORMATION
  Report Type: Spontaneous
  Country: DE (occurrence: DE)
  Receive Date: 20190521
  Receipt Date: 20190531
  Transmission Date: 20190711
  Serious: Yes (Hospitalization)
  Sender: FDA-Public Use
  Company Number: PHHY2019DE110811

PATIENT
  Age: 31 Year
  Sex: Male
  Weight: 70 kg

DRUGS (7)
  1. ETORICOXIB. [Concomitant]
     Active Substance: ETORICOXIB
     Indication: ARTHRALGIA
     Dosage: 60 MG, QD (DOSAGE FORM: UNSPECIFIED)
     Route: 065
     Dates: start: 20190405
  2. PANTOPRAZOL [Concomitant]
     Active Substance: PANTOPRAZOLE SODIUM
     Indication: GASTRIC ULCER
     Dosage: 40 MG, QD (DOSAGE FORM: UNSPECIFIED)
     Route: 065
  3. URSOFALK [Concomitant]
     Active Substance: URSODIOL
     Indication: CHOLELITHIASIS
     Dosage: 750 MG, QD (DOSAGE FORM: UNSPECIFIED)
     Route: 065
     Dates: start: 20180803
  4. AZATHIOPRINE. [Suspect]
     Active Substance: AZATHIOPRINE
     Indication: CROHN^S DISEASE
     Dosage: 75 MG, QD
     Route: 065
     Dates: start: 20180626
  5. BUDESONIDE. [Suspect]
     Active Substance: BUDESONIDE
     Indication: CROHN^S DISEASE
     Dosage: 2 MG, QD (DOSAGE FORM: UNSPECIFIED )
     Route: 065
     Dates: start: 20190405
  6. STELARA [Suspect]
     Active Substance: USTEKINUMAB
     Indication: CROHN^S DISEASE
     Dosage: 90 MG, UNK
     Route: 058
  7. METRONIDAZOLE. [Concomitant]
     Active Substance: METRONIDAZOLE
     Indication: POUCHITIS
     Dosage: 1200 MG, QD (DOSAGE FORM: UNSPECIFIED)
     Route: 065
     Dates: start: 20190405, end: 20190415

REACTIONS (5)
  - Decreased appetite [Not Recovered/Not Resolved]
  - Frequent bowel movements [Not Recovered/Not Resolved]
  - Arthralgia [Not Recovered/Not Resolved]
  - Musculoskeletal pain [Not Recovered/Not Resolved]
  - Night sweats [Not Recovered/Not Resolved]

NARRATIVE: CASE EVENT DATE: 20190402
